FAERS Safety Report 9034802 (Version 1)
Quarter: 2013Q1

REPORT INFORMATION
  Report Type: Spontaneous
  Country: DE (occurrence: DE)
  Receive Date: 20130128
  Receipt Date: 20130128
  Transmission Date: 20140127
  Serious: Yes (Other)
  Sender: FDA-Public Use
  Company Number: DE-NAPPMUNDI-DEU-2013-0010391

PATIENT
  Age: 63 Year
  Sex: Female

DRUGS (4)
  1. MST MUNDIPHARMA [Suspect]
     Indication: SPINAL PAIN
     Dosage: 50 MG, DAILY
     Route: 048
     Dates: start: 2001
  2. MST MUNDIPHARMA [Suspect]
     Indication: PAIN
  3. TRAMAGIT [Concomitant]
     Dosage: 100 MG, DAILY
  4. MELOXICAM [Concomitant]
     Dosage: 15 MG, DAILY

REACTIONS (1)
  - Sudden hearing loss [Recovered/Resolved]
